FAERS Safety Report 6554433-8 (Version None)
Quarter: 2010Q1

REPORT INFORMATION
  Report Type: 
  Country: None (occurrence: None)
  Receive Date: 20100125
  Receipt Date: 20100125
  Transmission Date: 20100710
  Serious: Yes (Hospitalization)
  Sender: FDA-Public Use
  Company Number: None

PATIENT
  Sex: Male
  Weight: 52.3 kg

DRUGS (6)
  1. CYTARABINE [Suspect]
     Dosage: 70 MG
  2. DOXORUBICIN HCL [Suspect]
     Dosage: 97 MG
  3. METHOTREXATE [Suspect]
     Dosage: 15 MG
  4. PEG-L-ASPARAGINASE (K-H) [Suspect]
     Dosage: 12150 IU
  5. PREDNISONE [Suspect]
     Dosage: 65 MG
  6. VINCRISTINE SULFATE [Suspect]
     Dosage: 7.5 MG

REACTIONS (12)
  - BLOOD CULTURE POSITIVE [None]
  - BLOOD PRESSURE ABNORMAL [None]
  - CANDIDIASIS [None]
  - CHEST PAIN [None]
  - GENERAL PHYSICAL HEALTH DETERIORATION [None]
  - HAEMODYNAMIC INSTABILITY [None]
  - NEUTROPENIA [None]
  - PYREXIA [None]
  - RESPIRATORY TRACT INFECTION FUNGAL [None]
  - SEPTIC SHOCK [None]
  - TACHYCARDIA [None]
  - THROMBOCYTOPENIA [None]
